FAERS Safety Report 4558675-2 (Version None)
Quarter: 2005Q1

REPORT INFORMATION
  Report Type: 
  Country: None (occurrence: None)
  Receive Date: 20050119
  Receipt Date: 20050105
  Transmission Date: 20050727
  Serious: Yes (Other)
  Sender: FDA-Public Use
  Company Number: 200510058BCC

PATIENT
  Age: 57 Year
  Sex: Female
  Weight: 56.246 kg

DRUGS (6)
  1. BAYER MUSCLE + JOINT CREAM (CAMPHOR/ EUCALYPTUS/ MENTHOL/ METHYL SALIC [Suspect]
     Indication: PAIN
     Dosage: TOPICAL
     Route: 061
  2. ASPIRIN [Suspect]
     Indication: DIABETIC NEUROPATHY
     Dosage: 81 MG, QD, ORAL
     Route: 048
     Dates: end: 20050104
  3. ASPIRIN [Suspect]
     Indication: MYOCARDIAL INFARCTION
     Dosage: 81 MG, QD, ORAL
     Route: 048
     Dates: end: 20050104
  4. ASPIRIN [Suspect]
     Indication: PROPHYLAXIS
     Dosage: 81 MG, QD, ORAL
     Route: 048
     Dates: end: 20050104
  5. PAIN MEDICATION [Concomitant]
  6. INSULIN [Concomitant]

REACTIONS (4)
  - BLOOD GLUCOSE INCREASED [None]
  - BLOOD PRESSURE INCREASED [None]
  - BURNING SENSATION [None]
  - DYSPNOEA [None]
